FAERS Safety Report 12713359 (Version 1)
Quarter: 2016Q3

REPORT INFORMATION
  Report Type: Spontaneous
  Country: US (occurrence: US)
  Receive Date: 20160902
  Receipt Date: 20160902
  Transmission Date: 20161109
  Serious: No
  Sender: FDA-Public Use
  Company Number: US-ZYDUS-010315

PATIENT
  Age: 59 Year
  Sex: Male

DRUGS (6)
  1. PANTOPRAZOLE [Concomitant]
     Active Substance: PANTOPRAZOLE SODIUM
     Indication: GASTROOESOPHAGEAL REFLUX DISEASE
     Dates: start: 201512
  2. SILDENAFIL/SILDENAFIL CITRATE [Concomitant]
     Indication: ERECTILE DYSFUNCTION
     Dates: start: 201512
  3. AMLODIPINE [Suspect]
     Active Substance: AMLODIPINE BESYLATE
     Indication: HYPERTENSION
     Route: 048
     Dates: start: 20160120
  4. TRAMADOL/TRAMADOL HYDROCHLORIDE [Concomitant]
     Indication: PAIN
     Dates: start: 201601
  5. TAMSULOSIN/TAMSULOSIN HYDROCHLORIDE [Concomitant]
  6. LOSARTAN/LOSARTAN POTASSIUM [Concomitant]
     Indication: HYPERTENSION
     Dates: start: 201507

REACTIONS (2)
  - Drug ineffective [Not Recovered/Not Resolved]
  - Headache [Not Recovered/Not Resolved]

NARRATIVE: CASE EVENT DATE: 201601
